FAERS Safety Report 6832398-9 (Version None)
Quarter: 2010Q3

REPORT INFORMATION
  Report Type: 
  Country: None (occurrence: None)
  Receive Date: 20100712
  Receipt Date: 20100628
  Transmission Date: 20110219
  Serious: Yes (Other)
  Sender: FDA-Public Use
  Company Number: TR-MYLANLABS-2010S1011496

PATIENT
  Age: 66 Year
  Sex: Female

DRUGS (1)
  1. HYDROXYCHLOROQUINE [Suspect]
     Indication: SJOGREN'S SYNDROME
     Route: 065

REACTIONS (2)
  - RETINAL TOXICITY [None]
  - VASCULITIS [None]
